FAERS Safety Report 23568910 (Version 1)
Quarter: 2024Q1

REPORT INFORMATION
  Report Type: Report from Study
  Country: US (occurrence: US)
  Receive Date: 20240227
  Receipt Date: 20240227
  Transmission Date: 20240410
  Serious: No
  Sender: FDA-Public Use
  Company Number: US-ORG100014127-2023000715

PATIENT
  Age: 59 Year
  Sex: Female

DRUGS (11)
  1. METOPIRONE [Suspect]
     Active Substance: METYRAPONE
     Indication: Pituitary-dependent Cushing^s syndrome
     Dosage: 250 MG: 1 CAPSULE 04 TIMES DAILY
     Route: 048
     Dates: start: 20211026
  2. ATORVASTATIN TAB 20MG [Concomitant]
     Indication: Product used for unknown indication
  3. CLOPIDOGREL TAB 75MG [Concomitant]
     Indication: Product used for unknown indication
  4. GABAPENTIN CAP 400MG [Concomitant]
     Indication: Product used for unknown indication
  5. LEVOTHYROXIN TAB 125MCG/88MCG [Concomitant]
     Indication: Product used for unknown indication
  6. LISINOPRIL [Concomitant]
     Active Substance: LISINOPRIL
     Indication: Product used for unknown indication
  7. METOPROLOL SUCCINATE [Concomitant]
     Active Substance: METOPROLOL SUCCINATE
     Indication: Product used for unknown indication
  8. PLAVIX [Concomitant]
     Active Substance: CLOPIDOGREL BISULFATE
     Indication: Product used for unknown indication
  9. SPIRONOLACT TAB 100MG/50 MG [Concomitant]
     Indication: Product used for unknown indication
  10. TOPAMAX TAB 100MG [Concomitant]
     Indication: Product used for unknown indication
  11. VERAPAMIL CAP 120MG /240MG ER [Concomitant]
     Indication: Product used for unknown indication
     Dates: start: 20211026

REACTIONS (1)
  - Off label use [Unknown]

NARRATIVE: CASE EVENT DATE: 20211026
